FAERS Safety Report 17645767 (Version 1)
Quarter: 2020Q2

REPORT INFORMATION
  Report Type: Spontaneous
  Country: US (occurrence: US)
  Receive Date: 20200408
  Receipt Date: 20200408
  Transmission Date: 20200713
  Serious: No
  Sender: FDA-Public Use
  Company Number: US-AKRON, INC.-2082519

PATIENT
  Sex: Female

DRUGS (1)
  1. BETIMOL [Suspect]
     Active Substance: TIMOLOL

REACTIONS (4)
  - Eye pruritus [None]
  - Eyelid exfoliation [None]
  - Eye swelling [None]
  - Erythema of eyelid [None]
